FAERS Safety Report 14549532 (Version 2)
Quarter: 2019Q3

REPORT INFORMATION
  Report Type: Report from Study
  Country: DE (occurrence: DE)
  Receive Date: 20180219
  Receipt Date: 20190814
  Transmission Date: 20191004
  Serious: Yes (Hospitalization, Other)
  Sender: FDA-Public Use
  Company Number: DE-BRISTOL-MYERS SQUIBB COMPANY-BMS-2018-014891

PATIENT
  Age: 77 Year
  Sex: Female
  Weight: 96 kg

DRUGS (1)
  1. APIXABAN [Suspect]
     Active Substance: APIXABAN
     Indication: EMBOLISM VENOUS
     Dosage: 10 MILLIGRAM, BID
     Route: 065
     Dates: start: 20160527, end: 20161215

REACTIONS (4)
  - Blood loss anaemia [Unknown]
  - Tumour haemorrhage [Unknown]
  - Post procedural haemorrhage [Unknown]
  - Thrombophlebitis superficial [Unknown]

NARRATIVE: CASE EVENT DATE: 20161216
